FAERS Safety Report 16225463 (Version 1)
Quarter: 2019Q2

REPORT INFORMATION
  Report Type: Report from Study
  Country: RO (occurrence: RO)
  Receive Date: 20190422
  Receipt Date: 20190422
  Transmission Date: 20190711
  Serious: Yes (Hospitalization, Other)
  Sender: FDA-Public Use
  Company Number: RO-GILEAD-2019-0403406

PATIENT
  Age: 64 Year
  Sex: Female

DRUGS (6)
  1. EUTHYROX [Concomitant]
     Active Substance: LEVOTHYROXINE SODIUM
     Indication: THYROID DISORDER
  2. CONCOR [Concomitant]
     Active Substance: BISOPROLOL FUMARATE
  3. ECHINACEA EXTRACT [ECHINACEA PURPUREA EXTRACT] [Concomitant]
  4. ALPHA D3 [Concomitant]
     Active Substance: ALFACALCIDOL
  5. CONTROLOC [Concomitant]
     Active Substance: PANTOPRAZOLE SODIUM
  6. LEDIPASVIR/SOFOSBUVIR [Suspect]
     Active Substance: LEDIPASVIR\SOFOSBUVIR
     Indication: CHRONIC HEPATITIS C
     Dosage: 1 DOSAGE FORM, QD
     Route: 048
     Dates: start: 20190123, end: 20190314

REACTIONS (9)
  - Myalgia [Recovered/Resolved]
  - Lupus-like syndrome [Unknown]
  - Bone pain [Recovered/Resolved]
  - Thrombophlebitis [Recovered/Resolved]
  - Pleural effusion [Recovered/Resolved]
  - Weight decreased [Not Recovered/Not Resolved]
  - Pericardial effusion [Recovered/Resolved]
  - Back pain [Recovered/Resolved]
  - Oral candidiasis [Recovered/Resolved]

NARRATIVE: CASE EVENT DATE: 201902
